FAERS Safety Report 13584321 (Version 3)
Quarter: 2017Q2

REPORT INFORMATION
  Report Type: Report from Study
  Country: US (occurrence: US)
  Receive Date: 20170526
  Receipt Date: 20170602
  Transmission Date: 20170830
  Serious: No
  Sender: FDA-Public Use
  Company Number: US-PFIZER INC-2017229365

PATIENT
  Age: 43 Year
  Sex: Female

DRUGS (2)
  1. FABIOR [Suspect]
     Active Substance: TAZAROTENE
     Dosage: UNK
     Dates: start: 20170313
  2. EUCRISA [Suspect]
     Active Substance: CRISABOROLE
     Dosage: UNK
     Dates: start: 20170313

REACTIONS (1)
  - Application site burn [Unknown]
